FAERS Safety Report 13784099 (Version 3)
Quarter: 2018Q1

REPORT INFORMATION
  Report Type: Spontaneous
  Country: BR (occurrence: BR)
  Receive Date: 20170724
  Receipt Date: 20180202
  Transmission Date: 20180508
  Serious: Yes (Other)
  Sender: FDA-Public Use
  Company Number: BR-BRISTOL-MYERS SQUIBB COMPANY-BMS-2017-063883

PATIENT
  Age: 60 Year
  Sex: Male
  Weight: 60 kg

DRUGS (1)
  1. NIVOLUMAB [Suspect]
     Active Substance: NIVOLUMAB
     Indication: RENAL CANCER
     Dosage: 186 MG, UNK
     Route: 042
     Dates: start: 20170629

REACTIONS (4)
  - Infusion site oedema [Recovered/Resolved]
  - Infusion site extravasation [Unknown]
  - Therapeutic aspiration [Unknown]
  - Infusion site pain [Unknown]

NARRATIVE: CASE EVENT DATE: 20180111
